FAERS Safety Report 5905720-5 (Version None)
Quarter: 2008Q4

REPORT INFORMATION
  Report Type: 
  Country: None (occurrence: None)
  Receive Date: 20081002
  Receipt Date: 20080925
  Transmission Date: 20090506
  Serious: Yes (Hospitalization)
  Sender: FDA-Public Use
  Company Number: PHHO1997BE02412

PATIENT
  Sex: Male
  Weight: 73 kg

DRUGS (5)
  1. SANDIMMUNE [Suspect]
     Route: 048
     Dates: start: 19960909
  2. IMURAN [Concomitant]
     Dosage: UNSPECIFIED
     Route: 065
  3. MEDROL [Concomitant]
     Dosage: UNSPECIFIED
     Route: 065
  4. TAGAMET [Concomitant]
     Dosage: UNSPECIFIED
     Route: 065
  5. CACIT [Concomitant]
     Dosage: UNSPECIFIED
     Route: 065

REACTIONS (1)
  - SURGERY [None]
